FAERS Safety Report 6345522-1 (Version None)
Quarter: 2009Q3

REPORT INFORMATION
  Report Type: 
  Country: None (occurrence: None)
  Receive Date: 20090909
  Receipt Date: 20090901
  Transmission Date: 20100115
  Serious: Yes (Hospitalization)
  Sender: FDA-Public Use
  Company Number: DE-BRISTOL-MYERS SQUIBB COMPANY-14769384

PATIENT
  Age: 63 Year
  Sex: Female
  Weight: 50 kg

DRUGS (3)
  1. CETUXIMAB [Suspect]
     Indication: NON-SMALL CELL LUNG CANCER
     Dosage: INTERRUPTED ON 15APR09, RESTARTED ON 30APR09 ACTUAL DOSE: 380MG
     Route: 065
     Dates: start: 20080130
  2. CARBOPLATIN [Suspect]
     Indication: NON-SMALL CELL LUNG CANCER
     Dosage: 5AUC RECENT DOSE: 2APR09
     Route: 065
     Dates: start: 20080130
  3. GEMZAR [Suspect]
     Indication: NON-SMALL CELL LUNG CANCER
     Dosage: ACTUAL DOSE: 1788MG RECENT DOSE: 9APR09
     Route: 065
     Dates: start: 20080130

REACTIONS (2)
  - PNEUMONIA [None]
  - PNEUMOTHORAX [None]
